FAERS Safety Report 19664888 (Version 1)
Quarter: 2021Q3

REPORT INFORMATION
  Report Type: Spontaneous
  Country: US (occurrence: US)
  Receive Date: 20210806
  Receipt Date: 20210806
  Transmission Date: 20211014
  Serious: No
  Sender: FDA-Public Use
  Company Number: US-ACCORD-220437

PATIENT

DRUGS (2)
  1. RAMUCIRUMAB [Suspect]
     Active Substance: RAMUCIRUMAB
     Indication: CHEMOTHERAPY
     Dosage: IV 250ML NS TOTAL 60 MIN
  2. DOCETAXEL ACCORD [Suspect]
     Active Substance: DOCETAXEL
     Indication: CHEMOTHERAPY
     Dosage: IV 250ML NS 60 MIN
     Dates: start: 20200629, end: 20200922

REACTIONS (1)
  - Dacryostenosis acquired [Unknown]
